FAERS Safety Report 16860534 (Version 2)
Quarter: 2019Q4

REPORT INFORMATION
  Report Type: Spontaneous
  Country: US (occurrence: US)
  Receive Date: 20190927
  Receipt Date: 20191212
  Transmission Date: 20200122
  Serious: No
  Sender: FDA-Public Use
  Company Number: US-PFIZER INC-2019418636

PATIENT
  Age: 64 Year
  Sex: Female

DRUGS (3)
  1. PREGABALIN. [Suspect]
     Active Substance: PREGABALIN
     Indication: HEMIPARESIS
     Dosage: 150 MG, 3X/DAY
     Route: 048
  2. PREGABALIN. [Suspect]
     Active Substance: PREGABALIN
     Indication: DYSAESTHESIA
  3. NORTRIPTYLINE [Concomitant]
     Active Substance: NORTRIPTYLINE
     Indication: DYSAESTHESIA
     Dosage: 10 MG, UNK
     Dates: end: 2019

REACTIONS (6)
  - Chest discomfort [Unknown]
  - Drug ineffective [Unknown]
  - Off label use [Unknown]
  - Chest pain [Unknown]
  - Hypertension [Unknown]
  - Product use in unapproved indication [Unknown]
